FAERS Safety Report 19296702 (Version 9)
Quarter: 2024Q1

REPORT INFORMATION
  Report Type: Spontaneous
  Country: GB (occurrence: GB)
  Receive Date: 20210524
  Receipt Date: 20240302
  Transmission Date: 20240410
  Serious: Yes (Death, Hospitalization, Other)
  Sender: FDA-Public Use
  Company Number: None

PATIENT
  Age: 5 Year
  Sex: Male

DRUGS (18)
  1. CYCLOPHOSPHAMIDE [Suspect]
     Active Substance: CYCLOPHOSPHAMIDE
     Indication: Brain cancer metastatic
     Dosage: UNK, ROUTE- PARENTERAL
     Route: 050
     Dates: start: 20191101, end: 20191216
  2. CYCLOPHOSPHAMIDE [Suspect]
     Active Substance: CYCLOPHOSPHAMIDE
     Indication: Chemotherapy
  3. ETOPOSIDE [Suspect]
     Active Substance: ETOPOSIDE
     Indication: Brain cancer metastatic
     Dosage: UNK, ROUTE: PARENTERAL
     Route: 050
     Dates: start: 20191101, end: 20191216
  4. ETOPOSIDE [Suspect]
     Active Substance: ETOPOSIDE
     Indication: Chemotherapy
  5. CISPLATIN [Suspect]
     Active Substance: CISPLATIN
     Indication: Brain cancer metastatic
     Dosage: UNK, ROUTE- PARENTERAL
     Route: 050
     Dates: start: 20191101, end: 20191216
  6. CISPLATIN [Suspect]
     Active Substance: CISPLATIN
     Indication: Chemotherapy
  7. VINCRISTINE SULFATE [Suspect]
     Active Substance: VINCRISTINE SULFATE
     Indication: Brain cancer metastatic
     Dosage: UNK, ROUTE- PARENTERAL
     Route: 050
     Dates: start: 20191101, end: 20191216
  8. VINCRISTINE SULFATE [Suspect]
     Active Substance: VINCRISTINE SULFATE
     Indication: Chemotherapy
  9. THIOTEPA [Concomitant]
     Active Substance: THIOTEPA
     Dosage: UNK
     Route: 065
  10. CARBOPLATIN [Concomitant]
     Active Substance: CARBOPLATIN
     Dosage: UNK
     Route: 065
  11. APREPITANT [Concomitant]
     Active Substance: APREPITANT
     Dosage: UNK, ADDITIONAL INFO: ROUTE: PARENT ROUTE: (0.4.0.127.0.16.1.1.2.6 ; )
     Route: 050
  12. COTRIMOXAZOLE [Concomitant]
     Active Substance: SULFAMETHOXAZOLE\TRIMETHOPRIM
     Dosage: UNK, ADDITIONAL INFO: ROUTE: PARENT ROUTE: (0.4.0.127.0.16.1.1.2.6 ; )
     Route: 050
  13. DESMOPRESSIN [Concomitant]
     Active Substance: DESMOPRESSIN
     Dosage: UNK, ADDITIONAL INFO: ROUTE: PARENT ROUTE: (0.4.0.127.0.16.1.1.2.6 ; )
     Route: 050
  14. LENOGRASTIM [Concomitant]
     Active Substance: LENOGRASTIM
     Dosage: UNK, ADDITIONAL INFO: ROUTE: PARENT ROUTE: (0.4.0.127.0.16.1.1.2.6 ; )
     Route: 050
  15. LEVETIRACETAM [Concomitant]
     Active Substance: LEVETIRACETAM
     Dosage: UNK, ADDITIONAL INFO: ROUTE: PARENT ROUTE: (0.4.0.127.0.16.1.1.2.6 ; )
     Route: 050
  16. LOPERAMIDE [Concomitant]
     Active Substance: LOPERAMIDE
     Dosage: UNK, ADDITIONAL INFO: ROUTE: PARENT ROUTE: (0.4.0.127.0.16.1.1.2.6 ; )
     Route: 050
  17. METOCLOPRAMIDE [Concomitant]
     Active Substance: METOCLOPRAMIDE
     Dosage: UNK, ADDITIONAL INFO: ROUTE: PARENT ROUTE: (0.4.0.127.0.16.1.1.2.6 ; )
     Route: 050
  18. ONDANSETRON [Concomitant]
     Active Substance: ONDANSETRON
     Dosage: UNK, ADDITIONAL INFO: ROUTE: PARENT ROUTE: (0.4.0.127.0.16.1.1.2.6 ; )
     Route: 050

REACTIONS (19)
  - Haemorrhage intracranial [Fatal]
  - Illness [Unknown]
  - Hydrocephalus [Unknown]
  - Rectal prolapse [Unknown]
  - Feeding disorder [Unknown]
  - Drug ineffective [Unknown]
  - Intestinal prolapse [Unknown]
  - Malignant neoplasm progression [Unknown]
  - Acute kidney injury [Unknown]
  - Seizure [Unknown]
  - Neutropenic sepsis [Unknown]
  - Pancytopenia [Unknown]
  - Mouth ulceration [Unknown]
  - Pain [Unknown]
  - Headache [Unknown]
  - Diarrhoea [Unknown]
  - Vomiting [Unknown]
  - Abdominal discomfort [Unknown]
  - Mucosal inflammation [Unknown]

NARRATIVE: CASE EVENT DATE: 20191216
